FAERS Safety Report 4955268-X (Version None)
Quarter: 2006Q1

REPORT INFORMATION
  Report Type: 
  Country: None (occurrence: None)
  Receive Date: 20060328
  Receipt Date: 20060320
  Transmission Date: 20060701
  Serious: Yes (Hospitalization)
  Sender: FDA-Public Use
  Company Number: 2006PK00564

PATIENT

DRUGS (3)
  1. SEROQUEL [Suspect]
     Route: 048
  2. LORAZEPAM [Suspect]
  3. ZOLPIDEM [Suspect]

REACTIONS (2)
  - DRUG TOXICITY [None]
  - TOXIC EPIDERMAL NECROLYSIS [None]
